FAERS Safety Report 11005359 (Version 3)
Quarter: 2015Q3

REPORT INFORMATION
  Report Type: Spontaneous
  Country: US (occurrence: US)
  Receive Date: 20150409
  Receipt Date: 20150701
  Transmission Date: 20151125
  Serious: Yes (Death, Other)
  Sender: FDA-Public Use
  Company Number: US-MERCK-1504USA003802

PATIENT
  Sex: Female
  Weight: 60.77 kg

DRUGS (1)
  1. JANUVIA [Suspect]
     Active Substance: SITAGLIPTIN PHOSPHATE
     Indication: TYPE 2 DIABETES MELLITUS
     Dosage: 100 MG, QD
     Route: 048
     Dates: start: 20120330, end: 20130227

REACTIONS (8)
  - Pancreatic carcinoma metastatic [Fatal]
  - Herpes zoster [Recovering/Resolving]
  - Acute respiratory failure [Fatal]
  - Haemangioma of liver [Unknown]
  - Portal vein thrombosis [Unknown]
  - Metastases to liver [Unknown]
  - Duodenal ulcer [Unknown]
  - Gastrointestinal disorder [Unknown]

NARRATIVE: CASE EVENT DATE: 20130515
